FAERS Safety Report 6736128-0 (Version None)
Quarter: 2010Q2

REPORT INFORMATION
  Report Type: 
  Country: None (occurrence: None)
  Receive Date: 20100521
  Receipt Date: 20100513
  Transmission Date: 20101027
  Serious: Yes (Other)
  Sender: FDA-Public Use
  Company Number: B0649353A

PATIENT
  Sex: Female

DRUGS (2)
  1. ALLI [Suspect]
     Indication: DRUG USE FOR UNKNOWN INDICATION
     Dosage: 60MG UNKNOWN
     Route: 065
  2. UNSPECIFIED MEDICATIONS [Concomitant]

REACTIONS (2)
  - ASTHMA [None]
  - WHEEZING [None]
